FAERS Safety Report 14894835 (Version 1)
Quarter: 2018Q2

REPORT INFORMATION
  Report Type: Report from Study
  Country: US (occurrence: US)
  Receive Date: 20180515
  Receipt Date: 20180515
  Transmission Date: 20180711
  Serious: Yes (Other)
  Sender: FDA-Public Use
  Company Number: US-BRISTOL-MYERS SQUIBB COMPANY-BMS-2018-043364

PATIENT
  Age: 57 Year
  Sex: Female
  Weight: 51.2 kg

DRUGS (2)
  1. NIVOLUMAB [Suspect]
     Active Substance: NIVOLUMAB
     Indication: ENDOMETRIAL SARCOMA
     Dosage: 720 MG, UNK
     Route: 042
     Dates: start: 20180207, end: 20180307
  2. IPILIMUMAB [Suspect]
     Active Substance: IPILIMUMAB
     Indication: ENDOMETRIAL SARCOMA
     Dosage: 56.5 MG, UNK
     Route: 042
     Dates: start: 20180207, end: 20180307

REACTIONS (1)
  - Lymphocyte count decreased [Unknown]

NARRATIVE: CASE EVENT DATE: 20180319
